FAERS Safety Report 16648527 (Version 1)
Quarter: 2019Q3

REPORT INFORMATION
  Report Type: Spontaneous
  Country: US (occurrence: US)
  Receive Date: 20190730
  Receipt Date: 20190730
  Transmission Date: 20191004
  Serious: Yes (Other)
  Sender: FDA-Public Use
  Company Number: PHEH2019US031118

PATIENT
  Sex: Female

DRUGS (24)
  1. PACLITAXEL. [Suspect]
     Active Substance: PACLITAXEL
     Dosage: UNK
     Route: 065
     Dates: start: 20171207, end: 20171229
  2. PACLITAXEL. [Suspect]
     Active Substance: PACLITAXEL
     Dosage: UNK
     Route: 065
     Dates: start: 20190315
  3. AVASTIN [Suspect]
     Active Substance: BEVACIZUMAB
     Indication: OVARIAN CLEAR CELL CARCINOMA
     Dosage: UNK
     Route: 065
     Dates: start: 20170623, end: 20170901
  4. LEUCOVORIN. [Suspect]
     Active Substance: LEUCOVORIN
     Indication: OVARIAN CLEAR CELL CARCINOMA
     Dosage: UNK
     Route: 065
     Dates: start: 20170623
  5. PACLITAXEL. [Suspect]
     Active Substance: PACLITAXEL
     Dosage: 6 CYCLES
     Route: 065
     Dates: start: 201610, end: 201702
  6. LYNPARZA [Suspect]
     Active Substance: OLAPARIB
     Indication: OVARIAN CLEAR CELL CARCINOMA
     Dosage: UNK
     Route: 065
     Dates: start: 20180727, end: 20181109
  7. GEMCITABINE. [Suspect]
     Active Substance: GEMCITABINE
     Indication: OVARIAN CLEAR CELL CARCINOMA
     Dosage: UNK
     Route: 065
     Dates: start: 20180309
  8. AVASTIN [Suspect]
     Active Substance: BEVACIZUMAB
     Dosage: UNK
     Route: 065
     Dates: start: 20180314
  9. LEUCOVORIN. [Suspect]
     Active Substance: LEUCOVORIN
     Dosage: UNK
     Route: 065
     Dates: start: 20190315
  10. CARBOPLATIN. [Suspect]
     Active Substance: CARBOPLATIN
     Dosage: UNK
     Route: 065
     Dates: start: 20170623
  11. PACLITAXEL. [Suspect]
     Active Substance: PACLITAXEL
     Indication: OVARIAN CLEAR CELL CARCINOMA
     Dosage: UNK
     Route: 065
     Dates: start: 20111027
  12. TOPOTECAN [Suspect]
     Active Substance: TOPOTECAN HYDROCHLORIDE
     Indication: OVARIAN CLEAR CELL CARCINOMA
     Dosage: UNK
     Route: 065
     Dates: start: 20181116
  13. AVASTIN [Suspect]
     Active Substance: BEVACIZUMAB
     Dosage: UNK
     Route: 065
     Dates: start: 20181116
  14. PACLITAXEL. [Suspect]
     Active Substance: PACLITAXEL
     Dosage: UNK
     Route: 065
     Dates: start: 20180309, end: 20180413
  15. PACLITAXEL. [Suspect]
     Active Substance: PACLITAXEL
     Dosage: UNK
     Route: 065
     Dates: start: 20170623
  16. 5-FLUOROURACIL [Suspect]
     Active Substance: FLUOROURACIL
     Indication: OVARIAN CLEAR CELL CARCINOMA
     Dosage: UNK
     Route: 065
     Dates: start: 20170623
  17. DOXIL [Suspect]
     Active Substance: DOXORUBICIN HYDROCHLORIDE
     Indication: OVARIAN CLEAR CELL CARCINOMA
     Dosage: UNK
     Route: 065
     Dates: start: 20171229
  18. CARBOPLATIN. [Suspect]
     Active Substance: CARBOPLATIN
     Indication: OVARIAN CLEAR CELL CARCINOMA
     Dosage: UNK
     Route: 065
     Dates: start: 20111027
  19. CISPLATIN. [Suspect]
     Active Substance: CISPLATIN
     Indication: OVARIAN CLEAR CELL CARCINOMA
     Dosage: UNK
     Route: 065
     Dates: start: 20181116
  20. CISPLATIN. [Suspect]
     Active Substance: CISPLATIN
     Dosage: LOW DOSE
     Route: 065
     Dates: start: 20190510
  21. CARBOPLATIN. [Suspect]
     Active Substance: CARBOPLATIN
     Dosage: 6 CYCLES
     Route: 065
     Dates: start: 201610, end: 201702
  22. OXALIPLATIN. [Suspect]
     Active Substance: OXALIPLATIN
     Indication: PRODUCT USED FOR UNKNOWN INDICATION
     Dosage: UNK
     Route: 065
     Dates: start: 20190315
  23. AVASTIN [Suspect]
     Active Substance: BEVACIZUMAB
     Dosage: UNK
     Route: 065
     Dates: start: 20171229, end: 20180223
  24. 5-FLUOROURACIL [Suspect]
     Active Substance: FLUOROURACIL
     Dosage: UNK
     Route: 065
     Dates: start: 20190215

REACTIONS (14)
  - Nodule [Unknown]
  - Malignant neoplasm progression [Unknown]
  - Vaginal lesion [Unknown]
  - Carbohydrate antigen 125 increased [Unknown]
  - Retroperitoneal lymphadenopathy [Unknown]
  - BRCA2 gene mutation [Unknown]
  - Pelvic fluid collection [Unknown]
  - Drug intolerance [Unknown]
  - Lymphadenopathy [Unknown]
  - Acquired gene mutation [Unknown]
  - Abdominal mass [Unknown]
  - Ovarian clear cell carcinoma [Unknown]
  - Pelvic mass [Unknown]
  - Renal mass [Unknown]

NARRATIVE: CASE EVENT DATE: 20120221
